FAERS Safety Report 18970828 (Version 1)
Quarter: 2021Q1

REPORT INFORMATION
  Report Type: Spontaneous
  Country: HR (occurrence: HR)
  Receive Date: 20210305
  Receipt Date: 20210305
  Transmission Date: 20210420
  Serious: Yes (Other)
  Sender: FDA-Public Use
  Company Number: HR-JNJFOC-20210241867

PATIENT
  Age: 36 Year
  Sex: Female

DRUGS (1)
  1. RISPOLEPT [Suspect]
     Active Substance: RISPERIDONE
     Indication: PRODUCT USED FOR UNKNOWN INDICATION
     Dosage: 2 THIRDS OF RISPOLEPT SOLUTION 1 MG/ML BOTTLE OF 100 ML.
     Route: 048
     Dates: start: 202101, end: 202101

REACTIONS (3)
  - No adverse event [Unknown]
  - Intentional overdose [Unknown]
  - Suicide attempt [Unknown]

NARRATIVE: CASE EVENT DATE: 202101
